FAERS Safety Report 5068638-9 (Version None)
Quarter: 2006Q3

REPORT INFORMATION
  Report Type: 
  Country: None (occurrence: None)
  Receive Date: 20060802
  Receipt Date: 20060119
  Transmission Date: 20061208
  Serious: No
  Sender: FDA-Public Use
  Company Number: US-BRISTOL-MYERS SQUIBB COMPANY-13253885

PATIENT
  Age: 83 Year
  Sex: Female
  Weight: 90 kg

DRUGS (14)
  1. COUMADIN [Suspect]
     Indication: CEREBROVASCULAR ACCIDENT
     Dosage: PRIOR DOSAGE OF 7.5 MG FOR 2 DAYS + 5 MG FOR 5 DAYS WEEKLY
     Dates: start: 19910101
  2. ADVAIR DISKUS 100/50 [Concomitant]
  3. PREDNISONE [Concomitant]
  4. AVAPRO [Concomitant]
  5. LASIX [Concomitant]
  6. TENORMIN [Concomitant]
  7. SINGULAIR [Concomitant]
  8. PREVACID [Concomitant]
  9. POTASSIUM [Concomitant]
  10. CELEXA [Concomitant]
  11. ALBUTEROL SPIROS [Concomitant]
  12. ALTACE [Concomitant]
  13. VICODIN [Concomitant]
  14. DOXYCYCLINE HCL [Concomitant]

REACTIONS (1)
  - CONTUSION [None]
